FAERS Safety Report 19515548 (Version 3)
Quarter: 2022Q3

REPORT INFORMATION
  Report Type: Report from Study
  Country: DO (occurrence: DO)
  Receive Date: 20210710
  Receipt Date: 20220729
  Transmission Date: 20221027
  Serious: No
  Sender: FDA-Public Use
  Company Number: NVSC2021DO150261

PATIENT
  Age: 60 Year
  Sex: Female

DRUGS (2)
  1. SECUKINUMAB [Suspect]
     Active Substance: SECUKINUMAB
     Indication: Psoriatic arthropathy
     Dosage: 150 MG, QMO
     Route: 058
     Dates: start: 20210514
  2. SECUKINUMAB [Suspect]
     Active Substance: SECUKINUMAB
     Indication: Ankylosing spondylitis

REACTIONS (5)
  - Helicobacter infection [Not Recovered/Not Resolved]
  - Gastritis [Unknown]
  - Pain [Not Recovered/Not Resolved]
  - Malaise [Unknown]
  - Vaginal infection [Recovered/Resolved]

NARRATIVE: CASE EVENT DATE: 20210629
